FAERS Safety Report 16764583 (Version 2)
Quarter: 2019Q3

REPORT INFORMATION
  Report Type: Report from Study
  Country: CR (occurrence: CR)
  Receive Date: 20190902
  Receipt Date: 20190917
  Transmission Date: 20191005
  Serious: Yes (Other)
  Sender: FDA-Public Use
  Company Number: PHHY2016CR106863

PATIENT
  Sex: Female
  Weight: 68 kg

DRUGS (4)
  1. SPASMOL [Concomitant]
     Indication: ABDOMINAL DISCOMFORT
     Dosage: 1 DF, QD
     Route: 065
  2. SANDOSTATIN LAR DEPOT [Suspect]
     Active Substance: OCTREOTIDE ACETATE
     Indication: CARCINOID TUMOUR
     Dosage: 30 MG, QMO
     Route: 065
     Dates: start: 20160505
  3. ALKA [Concomitant]
     Indication: PRODUCT USED FOR UNKNOWN INDICATION
     Dosage: 1 DF, QD
     Route: 065
  4. SODIUM BICARBONATE. [Concomitant]
     Active Substance: SODIUM BICARBONATE
     Indication: ABDOMINAL DISCOMFORT
     Route: 065

REACTIONS (23)
  - Pain [Recovering/Resolving]
  - Asphyxia [Unknown]
  - Dermatitis allergic [Recovered/Resolved]
  - Erythema [Unknown]
  - Stress [Unknown]
  - General physical health deterioration [Unknown]
  - Abdominal distension [Unknown]
  - Nausea [Recovering/Resolving]
  - Feeling abnormal [Unknown]
  - Vomiting [Recovered/Resolved]
  - Palpitations [Unknown]
  - Discomfort [Recovered/Resolved]
  - Decreased appetite [Unknown]
  - Swelling face [Unknown]
  - Abdominal pain upper [Unknown]
  - Dizziness [Recovering/Resolving]
  - Malaise [Unknown]
  - Bone pain [Unknown]
  - Tremor [Unknown]
  - Cough [Unknown]
  - Diarrhoea [Recovered/Resolved]
  - Cold sweat [Unknown]
  - Tachycardia [Recovering/Resolving]
